FAERS Safety Report 6537986-5 (Version None)
Quarter: 2010Q1

REPORT INFORMATION
  Report Type: 
  Country: None (occurrence: None)
  Receive Date: 20100112
  Receipt Date: 20100112
  Transmission Date: 20100710
  Serious: Yes (Other)
  Sender: FDA-Public Use
  Company Number: None

PATIENT
  Sex: Female
  Weight: 71.6683 kg

DRUGS (1)
  1. SIMVASTATIN [Suspect]
     Indication: BLOOD CHOLESTEROL INCREASED
     Dosage: 1 10 MG TABLET ONCE A DAY @ BEDTI PO
     Route: 048
     Dates: start: 20091219, end: 20100106

REACTIONS (4)
  - PAIN OF SKIN [None]
  - PRURITUS GENERALISED [None]
  - RASH [None]
  - URTICARIA [None]
